FAERS Safety Report 13725235 (Version 3)
Quarter: 2017Q3

REPORT INFORMATION
  Report Type: Spontaneous
  Country: FR (occurrence: FR)
  Receive Date: 20170706
  Receipt Date: 20170921
  Transmission Date: 20171127
  Serious: Yes (Life-Threatening, Hospitalization)
  Sender: FDA-Public Use
  Company Number: FR-BAUSCH-BL-2017-020679

PATIENT
  Age: 57 Year
  Sex: Female

DRUGS (1)
  1. MOVIPREP [Suspect]
     Active Substance: ASCORBIC ACID\POLYETHYLENE GLYCOL 3350\POTASSIUM CHLORIDE\SODIUM ASCORBATE\SODIUM CHLORIDE\SODIUM SULFATE
     Indication: BOWEL PREPARATION
     Dosage: SINGLE
     Route: 048
     Dates: start: 20170623, end: 20170623

REACTIONS (8)
  - Portal vein thrombosis [Not Recovered/Not Resolved]
  - Acute abdomen [Recovered/Resolved]
  - Colitis ischaemic [Recovered/Resolved]
  - Vomiting [Recovered/Resolved]
  - Abdominal pain upper [Recovered/Resolved]
  - Rectal haemorrhage [Recovered/Resolved]
  - Cerebral venous thrombosis [Unknown]
  - Abdominal pain [Recovered/Resolved]

NARRATIVE: CASE EVENT DATE: 20170623
